FAERS Safety Report 18984322 (Version 4)
Quarter: 2021Q2

REPORT INFORMATION
  Report Type: Spontaneous
  Country: US (occurrence: US)
  Receive Date: 20210309
  Receipt Date: 20210611
  Transmission Date: 20210717
  Serious: Yes (Hospitalization)
  Sender: FDA-Public Use
  Company Number: US-JNJFOC-20210308025

PATIENT
  Age: 44 Year
  Sex: Female
  Weight: 102.15 kg

DRUGS (27)
  1. FLUTICASONE PROPIONATE. [Concomitant]
     Active Substance: FLUTICASONE PROPIONATE
     Indication: PRODUCT USED FOR UNKNOWN INDICATION
     Dosage: SPRAY 1 SPRAY INTO EACH NOSTRIL TWICE A DAY
     Route: 045
  2. BENZONATATE. [Concomitant]
     Active Substance: BENZONATATE
     Indication: COUGH
     Dosage: TAKE 1 CAPSULE BY MOUTH THREE TIMES DAILY AS NEEDED FOR COUGHING SWALLOW CAPSULE WHOLE
     Route: 048
     Dates: end: 20201106
  3. STELARA [Suspect]
     Active Substance: USTEKINUMAB
     Indication: PSORIASIS
     Route: 058
     Dates: start: 201506, end: 202011
  4. SERTRALINE [Concomitant]
     Active Substance: SERTRALINE HYDROCHLORIDE
     Route: 048
  5. TRIAMCINOLONE ACETONIDE. [Suspect]
     Active Substance: TRIAMCINOLONE ACETONIDE
     Dosage: 0.025% TOPICAL CREAM, APPLY TWICE AT AFFECTED AREA UNDER BREAST
     Route: 061
     Dates: end: 20201106
  6. HYDROCODONE/ACETAMINOPHEN [Concomitant]
     Active Substance: ACETAMINOPHEN\HYDROCODONE
     Dosage: HYDROCODONE 5 MG? ACETAMINOPHEN 325 MG TABLET
     Route: 048
     Dates: end: 20201228
  7. OXYCODONE AND ACETAMINOPHEN [Concomitant]
     Active Substance: ACETAMINOPHEN\OXYCODONE HYDROCHLORIDE
     Indication: PAIN
     Dosage: TAKE WITH FOOD AS NEEDED?OXYCODONE?ACETAMINOPHEN?5 MG?325 MG TABLET
     Route: 048
     Dates: end: 20210209
  8. DIAZEPAM. [Concomitant]
     Active Substance: DIAZEPAM
     Route: 065
     Dates: end: 20201228
  9. OXYCODONE [Concomitant]
     Active Substance: OXYCODONE
     Route: 048
     Dates: end: 20201208
  10. SIMVASTATIN. [Concomitant]
     Active Substance: SIMVASTATIN
     Indication: BLOOD CHOLESTEROL INCREASED
     Route: 048
  11. ONDANSETRON [Concomitant]
     Active Substance: ONDANSETRON
  12. OTEZLA [Concomitant]
     Active Substance: APREMILAST
  13. VENLAFAXINE [Concomitant]
     Active Substance: VENLAFAXINE HYDROCHLORIDE
     Route: 048
     Dates: end: 20201106
  14. NAPROXEN. [Concomitant]
     Active Substance: NAPROXEN
     Route: 048
     Dates: end: 20201106
  15. CYCLOBENZAPRINE. [Concomitant]
     Active Substance: CYCLOBENZAPRINE
     Indication: MUSCLE SPASMS
     Route: 048
  16. ALPRAZOLAM. [Concomitant]
     Active Substance: ALPRAZOLAM
     Route: 065
  17. LORAZEPAM. [Concomitant]
     Active Substance: LORAZEPAM
     Indication: ANXIETY
     Dosage: USE SPARINGLY
     Route: 048
     Dates: end: 20201228
  18. DIAZEPAM. [Concomitant]
     Active Substance: DIAZEPAM
     Route: 065
     Dates: end: 20201210
  19. CEPHALEXIN [CEFALEXIN] [Concomitant]
     Active Substance: CEPHALEXIN
     Route: 065
  20. AMOXICILLIN;CLAVULANATE POTASSIUM [Concomitant]
     Active Substance: AMOXICILLIN\CLAVULANATE POTASSIUM
     Dosage: AMOXICILLIN?875MG;CLAVULANATE POTASSIUM?125MG, WITH FOOD FOR 10 DAYS
     Route: 048
     Dates: end: 20201106
  21. STELARA [Suspect]
     Active Substance: USTEKINUMAB
     Route: 058
     Dates: start: 201609, end: 202011
  22. STELARA [Suspect]
     Active Substance: USTEKINUMAB
     Route: 058
     Dates: start: 201609, end: 20200920
  23. TRIAMCINOLONE ACETONIDE. [Suspect]
     Active Substance: TRIAMCINOLONE ACETONIDE
     Indication: PSORIASIS
     Dosage: 0.01% TO HER LEGS, SCALP
     Route: 061
  24. ATORVASTATIN [Concomitant]
     Active Substance: ATORVASTATIN
     Indication: BLOOD CHOLESTEROL INCREASED
     Route: 048
     Dates: end: 20210209
  25. SERTRALINE [Concomitant]
     Active Substance: SERTRALINE HYDROCHLORIDE
     Dosage: TAKE 1 TABLET (25MG) BY MOUTH DAILY FOR A TOTAL OF 75 MG ONCE DAILY
     Route: 048
  26. CEFDINIR. [Concomitant]
     Active Substance: CEFDINIR
     Dosage: TAKE 1 CAPSULE BY MOUTH TWICE A DAY WITH FOOD FOR 10 DAYS
     Route: 048
     Dates: end: 20201106
  27. NEORAL [Concomitant]
     Active Substance: CYCLOSPORINE

REACTIONS (4)
  - Wound dehiscence [Unknown]
  - Invasive ductal breast carcinoma [Recovered/Resolved]
  - Skin papilloma [Unknown]
  - Psoriasis [Unknown]

NARRATIVE: CASE EVENT DATE: 20201113
